FAERS Safety Report 6199335-4 (Version None)
Quarter: 2009Q2

REPORT INFORMATION
  Report Type: 
  Country: None (occurrence: None)
  Receive Date: 20090522
  Receipt Date: 20090522
  Transmission Date: 20091009
  Serious: Yes (Other)
  Sender: FDA-Public Use
  Company Number: US-PFIZER INC-2009179527

PATIENT
  Sex: Female

DRUGS (2)
  1. SPIRONOLACTONE [Suspect]
     Dosage: 25 MG, UNK
     Dates: end: 20081101
  2. BENICAR [Suspect]
     Indication: HYPERTENSION
     Dosage: 40 MG, UNK

REACTIONS (3)
  - DRY EYE [None]
  - DRY MOUTH [None]
  - RENAL CYST [None]
